FAERS Safety Report 10146661 (Version 1)
Quarter: 2014Q2

REPORT INFORMATION
  Report Type: Spontaneous
  Country: US (occurrence: None)
  Receive Date: 20140430
  Receipt Date: 20140430
  Transmission Date: 20141212
  Serious: Yes (Hospitalization)
  Sender: FDA-Public Use
  Company Number: None

PATIENT
  Age: 56 Year
  Sex: Male

DRUGS (5)
  1. PHENYTOIN [Suspect]
     Indication: CONVULSION PROPHYLAXIS
     Route: 048
     Dates: end: 20140223
  2. AMLODIPINE [Concomitant]
  3. BENZAPRIL [Concomitant]
  4. ACETAMINOPHEN [Concomitant]
  5. FENOFIBRATE [Concomitant]

REACTIONS (4)
  - Fall [None]
  - Toxicity to various agents [None]
  - Laceration [None]
  - Convulsion [None]
